FAERS Safety Report 4725623-1 (Version None)
Quarter: 2005Q3

REPORT INFORMATION
  Report Type: 
  Country: None (occurrence: None)
  Receive Date: 20050727
  Receipt Date: 20050627
  Transmission Date: 20060218
  Serious: Yes (Other)
  Sender: FDA-Public Use
  Company Number: JP-MERCK-0507USA03247

PATIENT
  Age: 76 Year
  Sex: Female

DRUGS (1)
  1. PRINIVIL [Suspect]
     Indication: MYOCARDIAL INFARCTION
     Route: 048

REACTIONS (3)
  - ESSENTIAL HYPERTENSION [None]
  - RENAL ARTERY ATHEROSCLEROSIS [None]
  - RENAL IMPAIRMENT [None]
